FAERS Safety Report 8270572-8 (Version None)
Quarter: 2012Q2

REPORT INFORMATION
  Report Type: 
  Country: None (occurrence: None)
  Receive Date: 20120410
  Receipt Date: 20120402
  Transmission Date: 20120825
  Serious: Yes (Other)
  Sender: FDA-Public Use
  Company Number: CA-SANOFI-AVENTIS-2012SA023309

PATIENT
  Age: 77 Year
  Sex: Female

DRUGS (6)
  1. DILTIAZEM HYDROCHLORIDE [Suspect]
     Route: 065
  2. FUROSEMIDE [Suspect]
     Route: 065
  3. CITALOPRAM HYDROBROMIDE [Suspect]
     Route: 065
  4. METOPROLOL SUCCINATE [Suspect]
     Route: 065
  5. QUETIAPINE FUMARATE [Suspect]
     Route: 065
  6. AMITRIPTYLINE HYDROCHLORIDE [Suspect]
     Indication: VENTRICULAR ARRHYTHMIA
     Route: 065

REACTIONS (6)
  - HYPOKALAEMIA [None]
  - ATRIOVENTRICULAR BLOCK [None]
  - ELECTROCARDIOGRAM QT PROLONGED [None]
  - ELECTROLYTE IMBALANCE [None]
  - HYPOMAGNESAEMIA [None]
  - TORSADE DE POINTES [None]
